FAERS Safety Report 11169077 (Version 2)
Quarter: 2015Q2

REPORT INFORMATION
  Report Type: Spontaneous
  Country: US (occurrence: US)
  Receive Date: 20150605
  Receipt Date: 20150625
  Transmission Date: 20150821
  Serious: Yes (Other)
  Sender: FDA-Public Use
  Company Number: US-TARO-2015TAR00512

PATIENT
  Age: 50 Year
  Sex: Male
  Weight: 81.65 kg

DRUGS (3)
  1. ENALAPRIL MALEATE TABLETS USP 5 MG [Suspect]
     Active Substance: ENALAPRIL MALEATE
     Indication: HYPERTENSION
     Dosage: 5 MG, 1X/DAY
     Route: 048
     Dates: start: 20150504, end: 201505
  2. GABAPENTIN. [Concomitant]
     Active Substance: GABAPENTIN
     Dosage: 300 MG, 3X/DAY
     Route: 048
  3. UNSPECIFIED BLOOD PRESSURE STUFF [Concomitant]

REACTIONS (11)
  - Headache [Recovered/Resolved]
  - Pharyngeal oedema [Recovered/Resolved]
  - Dyspnoea [Recovering/Resolving]
  - Abdominal pain upper [Not Recovered/Not Resolved]
  - Vomiting [Recovered/Resolved]
  - Testicular pain [Recovering/Resolving]
  - Product substitution issue [Unknown]
  - Angioedema [Recovered/Resolved]
  - Erection increased [Recovered/Resolved]
  - Nausea [Recovered/Resolved]
  - Gastrooesophageal reflux disease [Not Recovered/Not Resolved]

NARRATIVE: CASE EVENT DATE: 201505
